FAERS Safety Report 4308452-2 (Version None)
Quarter: 2004Q1

REPORT INFORMATION
  Report Type: 
  Country: None (occurrence: None)
  Receive Date: 20040226
  Receipt Date: 20031114
  Transmission Date: 20041129
  Serious: Yes (Life-Threatening)
  Sender: FDA-Public Use
  Company Number: 2004194036US

PATIENT
  Sex: Male

DRUGS (1)
  1. CELEBREX [Suspect]
     Indication: JOINT SPRAIN
     Dosage: 200 MG, QD
     Dates: start: 20031101

REACTIONS (3)
  - FATIGUE [None]
  - MELAENA [None]
  - VOMITING [None]
